FAERS Safety Report 20804234 (Version 1)
Quarter: 2022Q2

REPORT INFORMATION
  Report Type: Report from Study
  Country: NL (occurrence: NL)
  Receive Date: 20220509
  Receipt Date: 20220509
  Transmission Date: 20220721
  Serious: Yes (Other)
  Sender: FDA-Public Use
  Company Number: NL-ABBVIE-22K-114-4382639-00

PATIENT

DRUGS (3)
  1. VENETOCLAX [Suspect]
     Active Substance: VENETOCLAX
     Indication: Acute myeloid leukaemia
     Dosage: DAY 1
     Route: 048
     Dates: start: 20220112, end: 20220112
  2. VENETOCLAX [Suspect]
     Active Substance: VENETOCLAX
     Dosage: DAY 2
     Route: 048
     Dates: start: 20220113, end: 20220113
  3. VENETOCLAX [Suspect]
     Active Substance: VENETOCLAX
     Dosage: DAYS 3 TO 28
     Route: 048
     Dates: start: 20220114, end: 2022

REACTIONS (3)
  - Recurrent cancer [Not Recovered/Not Resolved]
  - Off label use [Not Recovered/Not Resolved]
  - Neutropenia [Unknown]

NARRATIVE: CASE EVENT DATE: 20220101
